FAERS Safety Report 9266321 (Version 2)
Quarter: 2013Q3

REPORT INFORMATION
  Report Type: Spontaneous
  Country: JP (occurrence: JP)
  Receive Date: 20130502
  Receipt Date: 20130809
  Transmission Date: 20140515
  Serious: Yes (Hospitalization, Other)
  Sender: FDA-Public Use
  Company Number: JP-JNJFOC-20130413583

PATIENT
  Age: 64 Year
  Sex: Female

DRUGS (2)
  1. GOLIMUMAB [Suspect]
     Indication: RHEUMATOID ARTHRITIS
     Dosage: FOR 24 WEEKS
     Route: 058
     Dates: start: 20110929, end: 20120524
  2. MEDROL [Suspect]
     Indication: RHEUMATOID ARTHRITIS
     Route: 048
     Dates: end: 20130524

REACTIONS (1)
  - Embolism venous [Recovered/Resolved]
